FAERS Safety Report 18086111 (Version 1)
Quarter: 2020Q3

REPORT INFORMATION
  Report Type: Spontaneous
  Country: US (occurrence: US)
  Receive Date: 20200727
  Receipt Date: 20200727
  Transmission Date: 20201103
  Serious: No
  Sender: FDA-Public Use
  Company Number: None

PATIENT
  Age: 71 Year
  Weight: 51.7 kg

DRUGS (1)
  1. ORENCIA [Suspect]
     Active Substance: ABATACEPT
     Indication: RHEUMATOID ARTHRITIS
     Dosage: ?          OTHER FREQUENCY:EVERY 28 DAYS;?
     Route: 042
     Dates: start: 20180702

REACTIONS (14)
  - Rhinorrhoea [None]
  - Diarrhoea [None]
  - Dysgeusia [None]
  - Myalgia [None]
  - Coronavirus infection [None]
  - Therapy cessation [None]
  - Anosmia [None]
  - Exposure to communicable disease [None]
  - Fatigue [None]
  - Vomiting [None]
  - Malaise [None]
  - Arthralgia [None]
  - Nausea [None]
  - Loss of personal independence in daily activities [None]
